FAERS Safety Report 10167542 (Version 1)
Quarter: 2014Q2

REPORT INFORMATION
  Report Type: Spontaneous
  Country: US (occurrence: None)
  Receive Date: 20140509
  Receipt Date: 20140509
  Transmission Date: 20141212
  Serious: Yes (Other)
  Sender: FDA-Public Use
  Company Number: None

PATIENT
  Age: 9 Year
  Sex: Male
  Weight: 28.12 kg

DRUGS (1)
  1. ADDERAL [Suspect]
     Dosage: 15 MG XR 1 DAILY MOUTH
     Route: 048
     Dates: start: 20121022, end: 20140404

REACTIONS (1)
  - Muscle twitching [None]
